FAERS Safety Report 4522113-6 (Version None)
Quarter: 2004Q4

REPORT INFORMATION
  Report Type: 
  Country: None (occurrence: None)
  Receive Date: 20041207
  Receipt Date: 20041101
  Transmission Date: 20050328
  Serious: Yes (Life-Threatening, Hospitalization)
  Sender: FDA-Public Use
  Company Number: D01200404465

PATIENT
  Age: 70 Year
  Sex: Female
  Weight: 87 kg

DRUGS (5)
  1. ENOXAPARIN SODIUM [Suspect]
     Indication: MYOCARDIAL INFARCTION
     Dosage: 1 MG/KG BID - SUBCUTANEOUS
     Route: 058
     Dates: start: 20041027
  2. ACETYLSALICYLIC ACID [Concomitant]
  3. HEPARIN [Concomitant]
  4. HEPARIN-FRACTION [Concomitant]
  5. SODIUM SALT [Concomitant]

REACTIONS (13)
  - BLADDER CANCER [None]
  - BRADYCARDIA [None]
  - CALCULUS URETERIC [None]
  - HAEMODIALYSIS [None]
  - HAEMOGLOBIN DECREASED [None]
  - HYDRONEPHROSIS [None]
  - LOSS OF CONSCIOUSNESS [None]
  - PAIN IN EXTREMITY [None]
  - RENAL FAILURE ACUTE [None]
  - RESPIRATORY ARREST [None]
  - RESPIRATORY FAILURE [None]
  - RESPIRATORY RATE DECREASED [None]
  - RETROPERITONEAL HAEMORRHAGE [None]
